FAERS Safety Report 12201622 (Version 1)
Quarter: 2016Q1

REPORT INFORMATION
  Report Type: Spontaneous
  Country: US (occurrence: US)
  Receive Date: 20160322
  Receipt Date: 20160322
  Transmission Date: 20160526
  Serious: No
  Sender: FDA-Public Use
  Company Number: US-SA-2015SA130187

PATIENT
  Age: 65 Year
  Sex: Female

DRUGS (2)
  1. NASACORT ALLERGY 24HR [Suspect]
     Active Substance: TRIAMCINOLONE ACETONIDE
     Indication: NASAL DECONGESTION THERAPY
     Dosage: DOSE: 2 SPRAYS EACH NOSTRIL
     Route: 045
  2. NASACORT ALLERGY 24HR [Suspect]
     Active Substance: TRIAMCINOLONE ACETONIDE
     Indication: NASAL DECONGESTION THERAPY
     Dosage: DOSE: 2 SPRAYS PER NOSTRIL?START DATE: A FEW MONTHS AGO
     Route: 045

REACTIONS (1)
  - Blister [Unknown]
